FAERS Safety Report 6646575-3 (Version None)
Quarter: 2010Q1

REPORT INFORMATION
  Report Type: 
  Country: None (occurrence: None)
  Receive Date: 20100323
  Receipt Date: 20100316
  Transmission Date: 20100710
  Serious: Yes (Hospitalization)
  Sender: FDA-Public Use
  Company Number: TR-ELI_LILLY_AND_COMPANY-TR201003004318

PATIENT
  Sex: Female

DRUGS (8)
  1. HUMULIN 70/30 [Suspect]
     Indication: TYPE 2 DIABETES MELLITUS
     Dosage: 40 U, EACH MORNING
     Route: 058
     Dates: start: 20060101
  2. HUMULIN 70/30 [Suspect]
     Dosage: 30 U, EACH EVENING
     Route: 058
     Dates: start: 20060101
  3. LANSOPRAL [Concomitant]
     Indication: GASTRIC DISORDER
     Dosage: 30 MG, DAILY (1/D)
     Route: 048
  4. DIOVAN HCT [Concomitant]
     Indication: HYPERTENSION
     Dosage: UNK, DAILY (1/D)
     Route: 048
  5. GINKGO BILOBA LEAF EXTRACT [Concomitant]
     Indication: CONSTIPATION
     Dosage: UNK, UNKNOWN
     Route: 048
  6. BENEXOL [Concomitant]
     Indication: VITAMIN SUPPLEMENTATION
     Dosage: 250 MG, DAILY (1/D)
     Route: 048
  7. GLUKOFEN [Concomitant]
     Indication: DIABETES MELLITUS
     Dosage: UNK, 3/D
     Route: 048
  8. FORADIL COMBI [Concomitant]
     Indication: BRONCHITIS
     Dosage: 400 UG, 2/D
     Route: 055

REACTIONS (3)
  - BLOOD GLUCOSE INCREASED [None]
  - EYE PAIN [None]
  - SOMNOLENCE [None]
